FAERS Safety Report 20834267 (Version 2)
Quarter: 2024Q3

REPORT INFORMATION
  Report Type: Report from Study
  Country: US (occurrence: US)
  Receive Date: 20220516
  Receipt Date: 20240723
  Transmission Date: 20241017
  Serious: No
  Sender: KYOWA
  Company Number: US-KYOWAKIRIN-2022BKK006969

PATIENT

DRUGS (3)
  1. BUROSUMAB [Suspect]
     Active Substance: BUROSUMAB
     Indication: Hereditary hypophosphataemic rickets
     Dosage: UNK, 1X/4 WEEKS
     Route: 065
  2. BUROSUMAB [Suspect]
     Active Substance: BUROSUMAB
     Indication: Hereditary hypophosphataemic rickets
     Dosage: UNK, 1X/MONTH
     Route: 065
  3. BUROSUMAB [Suspect]
     Active Substance: BUROSUMAB
     Dosage: 22 MG, 1X/WEEK
     Route: 058
     Dates: start: 20220201

REACTIONS (4)
  - Pain [Unknown]
  - Joint stiffness [Unknown]
  - Musculoskeletal stiffness [Recovered/Resolved]
  - Adverse drug reaction [Unknown]
